FAERS Safety Report 9493518 (Version 1)
Quarter: 2013Q3

REPORT INFORMATION
  Report Type: Spontaneous
  Country: US (occurrence: US)
  Receive Date: 20130902
  Receipt Date: 20130902
  Transmission Date: 20140515
  Serious: No
  Sender: FDA-Public Use
  Company Number: US-PFIZER INC-2013251693

PATIENT
  Age: 47 Year
  Sex: Female
  Weight: 56.69 kg

DRUGS (6)
  1. CHANTIX [Suspect]
     Indication: SMOKING CESSATION THERAPY
     Dosage: 0.5 MG, 1X/DAY
     Route: 048
  2. CHANTIX [Suspect]
     Dosage: UNK
     Route: 048
  3. CHANTIX [Suspect]
     Dosage: 1 MG, 2X/DAY
     Route: 048
     Dates: start: 20130806
  4. CARBAMAZEPINE [Concomitant]
     Dosage: UNK
  5. CONCERTA [Concomitant]
     Indication: ATTENTION DEFICIT/HYPERACTIVITY DISORDER
     Dosage: UNK
  6. CONCERTA [Concomitant]
     Indication: THINKING ABNORMAL

REACTIONS (2)
  - Inappropriate schedule of drug administration [Unknown]
  - Therapeutic response unexpected [Unknown]
